FAERS Safety Report 5102575-6 (Version None)
Quarter: 2006Q3

REPORT INFORMATION
  Report Type: 
  Country: None (occurrence: None)
  Receive Date: 20060912
  Receipt Date: 20060901
  Transmission Date: 20061208
  Serious: Yes (Other)
  Sender: FDA-Public Use
  Company Number: US-BRISTOL-MYERS SQUIBB COMPANY-13497573

PATIENT
  Age: 52 Year
  Sex: Male
  Weight: 74 kg

DRUGS (9)
  1. ERBITUX [Suspect]
     Indication: COLON CANCER
     Route: 042
     Dates: start: 20060803, end: 20060803
  2. OXALIPLATIN [Suspect]
     Indication: COLON CANCER
     Route: 042
     Dates: start: 20060727, end: 20060727
  3. LEUCOVORIN [Suspect]
     Indication: COLON CANCER
     Route: 042
     Dates: start: 20060727, end: 20060727
  4. FLUOROURACIL [Suspect]
     Indication: COLON CANCER
     Route: 040
     Dates: start: 20060729, end: 20060729
  5. LISINOPRIL [Suspect]
     Route: 048
  6. METOPROLOL TARTRATE [Suspect]
  7. ASPIRIN [Concomitant]
     Route: 048
  8. LIPITOR [Concomitant]
     Route: 048
  9. METFORMIN HYDROCHLORIDE [Concomitant]
     Route: 048

REACTIONS (1)
  - SYNCOPE VASOVAGAL [None]
